FAERS Safety Report 6574752-9 (Version None)
Quarter: 2010Q1

REPORT INFORMATION
  Report Type: 
  Country: None (occurrence: None)
  Receive Date: 20100209
  Receipt Date: 20100128
  Transmission Date: 20100710
  Serious: Yes (Other)
  Sender: FDA-Public Use
  Company Number: PHHY2010GB01039

PATIENT
  Sex: Male

DRUGS (4)
  1. CLOZARIL [Suspect]
     Indication: SCHIZOPHRENIA
     Dosage: 600 MG DAILY
     Route: 048
     Dates: start: 20010202
  2. VALPROATE SODIUM [Concomitant]
     Indication: EPILEPSY
     Dosage: 1800 MG DAILY
     Route: 048
  3. HYOSCINE HBR HYT [Concomitant]
     Dosage: 600 MCG DAILY
     Route: 048
  4. METHADONE HCL [Concomitant]
     Dosage: 40 MG DAILY
     Route: 048

REACTIONS (3)
  - NEUTROPENIA [None]
  - THERMAL BURN [None]
  - WHITE BLOOD CELL COUNT DECREASED [None]
